FAERS Safety Report 6795046-2 (Version None)
Quarter: 2010Q2

REPORT INFORMATION
  Report Type: 
  Country: None (occurrence: None)
  Receive Date: 20100625
  Receipt Date: 20100615
  Transmission Date: 20101027
  Serious: Yes (Other)
  Sender: FDA-Public Use
  Company Number: PHHY2010US33088

PATIENT
  Sex: Male
  Weight: 120.18 kg

DRUGS (10)
  1. EXJADE [Suspect]
     Indication: MYELODYSPLASTIC SYNDROME
     Dosage: 2000 MG, DAILY
     Dates: start: 20100510, end: 20100517
  2. EXJADE [Suspect]
     Indication: BLOOD IRON INCREASED
     Dosage: UNK
     Dates: start: 20100614
  3. NIFEDIPINE [Suspect]
     Indication: BLOOD PRESSURE INCREASED
     Dosage: 30 MG, QD
     Route: 048
     Dates: start: 20100513, end: 20100517
  4. ALLOPURINOL [Concomitant]
  5. LANTUS [Concomitant]
  6. TEMAZEPAM [Concomitant]
  7. FLUCONAZOLE [Concomitant]
  8. HUMALOG [Concomitant]
  9. METFORMIN HCL [Concomitant]
  10. SLOW-MAG [Concomitant]

REACTIONS (2)
  - ASTHENIA [None]
  - DYSPNOEA [None]
